FAERS Safety Report 7014442-1 (Version None)
Quarter: 2010Q3

REPORT INFORMATION
  Report Type: 
  Country: None (occurrence: None)
  Receive Date: 20100927
  Receipt Date: 20100915
  Transmission Date: 20110219
  Serious: Yes (Other)
  Sender: FDA-Public Use
  Company Number: US-JNJFOC-20100905606

PATIENT
  Sex: Female

DRUGS (9)
  1. REMICADE [Suspect]
     Indication: COLITIS ULCERATIVE
     Route: 042
  2. REMICADE [Suspect]
     Route: 042
  3. LO/OVRAL [Concomitant]
  4. ASACOL [Concomitant]
  5. FLONASE [Concomitant]
  6. MULTI-VITAMINS [Concomitant]
  7. VITAMIN B-12 [Concomitant]
  8. VALTREX [Concomitant]
  9. ALIGN PROBIOTIC [Concomitant]

REACTIONS (1)
  - EXTRANODAL MARGINAL ZONE B-CELL LYMPHOMA (MALT TYPE) [None]
